FAERS Safety Report 7634186-2 (Version None)
Quarter: 2011Q3

REPORT INFORMATION
  Report Type: 
  Country: None (occurrence: None)
  Receive Date: 20110725
  Receipt Date: 20110718
  Transmission Date: 20111222
  Serious: Yes (Hospitalization)
  Sender: FDA-Public Use
  Company Number: IN-EISAI INC-E7389-01317-CLI-IN

PATIENT
  Age: 65 Year
  Sex: Male
  Weight: 40 kg

DRUGS (9)
  1. TRAMADOL HCL [Concomitant]
     Indication: CHEST PAIN
     Route: 048
     Dates: start: 20110706, end: 20110711
  2. FOLIC ACID [Concomitant]
     Indication: PROPHYLAXIS
     Route: 048
     Dates: start: 20110713, end: 20110718
  3. CARBOPLATIN [Suspect]
     Indication: NON-SMALL CELL LUNG CANCER
     Route: 041
     Dates: start: 20110706
  4. DOMPERIDONE [Concomitant]
     Indication: PROPHYLAXIS OF NAUSEA AND VOMITING
     Route: 048
     Dates: start: 20110706, end: 20110718
  5. CYPROHEPTIDINE [Concomitant]
     Indication: PROPHYLAXIS
     Route: 048
     Dates: start: 20110706, end: 20110718
  6. ACECLOFENAC [Concomitant]
     Indication: CHEST PAIN
     Route: 048
     Dates: start: 20110713, end: 20110718
  7. ELEMENTAL IRON [Concomitant]
     Indication: PROPHYLAXIS
     Route: 048
     Dates: start: 20110713, end: 20110718
  8. PANTOPRAZOLE [Concomitant]
     Indication: PROPHYLAXIS OF NAUSEA AND VOMITING
     Route: 048
     Dates: start: 20110706, end: 20110718
  9. EPIRUBICIN HYDROCHLORIDE [Suspect]
     Indication: NON-SMALL CELL LUNG CANCER
     Route: 040
     Dates: start: 20110713

REACTIONS (4)
  - CONSTIPATION [None]
  - MUCOSAL INFLAMMATION [None]
  - HYPOPHAGIA [None]
  - PYREXIA [None]
